FAERS Safety Report 8352843-X (Version None)
Quarter: 2012Q2

REPORT INFORMATION
  Report Type: 
  Country: None (occurrence: None)
  Receive Date: 20120511
  Receipt Date: 20120502
  Transmission Date: 20120825
  Serious: Yes (Hospitalization)
  Sender: FDA-Public Use
  Company Number: FR-ASTRAZENECA-2012SE28721

PATIENT
  Age: 63 Year
  Sex: Female

DRUGS (3)
  1. TOFRANIL [Concomitant]
     Indication: DEPRESSION
     Dates: end: 20120401
  2. QUETIAPINE FUMARATE [Suspect]
     Indication: DEPRESSION
     Dosage: DOSE WAS PROGRESSIVELY INCREASED TO 400 MG PER DAY
     Route: 048
     Dates: start: 20120401, end: 20120427
  3. MARSILID PHOSPHATE TAB [Concomitant]
     Indication: DEPRESSION
     Dates: start: 20120401

REACTIONS (2)
  - ORTHOSTATIC HYPOTENSION [None]
  - FALL [None]
